FAERS Safety Report 19682182 (Version 2)
Quarter: 2021Q3

REPORT INFORMATION
  Report Type: Spontaneous
  Country: US (occurrence: US)
  Receive Date: 20210811
  Receipt Date: 20210917
  Transmission Date: 20211014
  Serious: No
  Sender: FDA-Public Use
  Company Number: US-AMGEN-USASP2021121027

PATIENT
  Age: 76 Year
  Sex: Female

DRUGS (3)
  1. KANJINTI [Suspect]
     Active Substance: TRASTUZUMAB-ANNS
     Dosage: 168MG KANJINTI DOSE WAS PREPARED USING 1 X 420MG VIAL
     Route: 065
  2. KANJINTI [Suspect]
     Active Substance: TRASTUZUMAB-ANNS
     Dosage: 168 MILLIGRAM, QWK
     Route: 065
  3. KANJINTI [Suspect]
     Active Substance: TRASTUZUMAB-ANNS
     Indication: BREAST CANCER
     Dosage: 168 MILLIGRAM, QWK
     Route: 065
     Dates: start: 20210512

REACTIONS (2)
  - Intercepted product preparation error [Unknown]
  - Sinusitis [Unknown]

NARRATIVE: CASE EVENT DATE: 20210820
